FAERS Safety Report 20635135 (Version 1)
Quarter: 2022Q1

REPORT INFORMATION
  Report Type: Report from Study
  Country: EG (occurrence: EG)
  Receive Date: 20220325
  Receipt Date: 20220325
  Transmission Date: 20220423
  Serious: Yes (Life-Threatening)
  Sender: FDA-Public Use
  Company Number: EG-NOVARTISPH-NVSC2022EG068129

PATIENT
  Age: 58 Year
  Sex: Male

DRUGS (9)
  1. ENTRESTO [Suspect]
     Active Substance: SACUBITRIL\VALSARTAN
     Indication: Cardiac failure
     Dosage: 1 DOSAGE FORM, BID
     Route: 048
     Dates: start: 2019, end: 20220319
  2. PLAVIX [Concomitant]
     Active Substance: CLOPIDOGREL BISULFATE
     Indication: Antiplatelet therapy
     Dosage: 1 DOSAGE FORM, QD (75 MG)
     Route: 048
     Dates: start: 2019
  3. RIVAROSPIRE [Concomitant]
     Indication: Antiplatelet therapy
     Dosage: 1 DOSAGE FORM, QD
     Route: 048
     Dates: start: 202202
  4. .ALPHA.-LIPOIC ACID [Concomitant]
     Active Substance: .ALPHA.-LIPOIC ACID
     Indication: Cardiac disorder
     Dosage: 1 DOSAGE FORM, QD
     Route: 048
     Dates: start: 202202
  5. NICORANDIL [Concomitant]
     Active Substance: NICORANDIL
     Indication: Cardiac disorder
     Dosage: 1 DOSAGE FORM, BID
     Route: 048
     Dates: start: 202202
  6. FUROSEMIDE\SPIRONOLACTONE [Concomitant]
     Active Substance: FUROSEMIDE\SPIRONOLACTONE
     Indication: Diuretic therapy
     Dosage: 1 DOSAGE FORM, QD
     Route: 048
     Dates: start: 202202
  7. ATORVASTATIN CALCIUM [Concomitant]
     Active Substance: ATORVASTATIN CALCIUM
     Indication: Hyperlipidaemia
     Dosage: 1 DOSAGE FORM, QD (40 MG)
     Route: 048
     Dates: start: 202202
  8. DILATROL [Concomitant]
     Indication: Hypertension
     Dosage: 1 DOSAGE FORM, BID
     Route: 048
     Dates: start: 202202
  9. VASTAREL [Concomitant]
     Active Substance: TRIMETAZIDINE DIHYDROCHLORIDE
     Indication: Antiallergic therapy
     Dosage: 1 DOSAGE FORM, BID
     Route: 048
     Dates: start: 202202

REACTIONS (4)
  - Road traffic accident [Recovering/Resolving]
  - Contusion [Recovering/Resolving]
  - Traumatic haematoma [Recovering/Resolving]
  - Eye haematoma [Recovering/Resolving]

NARRATIVE: CASE EVENT DATE: 20220226
